FAERS Safety Report 18619669 (Version 4)
Quarter: 2021Q3

REPORT INFORMATION
  Report Type: Spontaneous
  Country: CA (occurrence: CA)
  Receive Date: 20201215
  Receipt Date: 20210728
  Transmission Date: 20211014
  Serious: Yes (Other)
  Sender: FDA-Public Use
  Company Number: CA-PFIZER INC-2020491437

PATIENT
  Age: 56 Year
  Sex: Female

DRUGS (8)
  1. XELJANZ [Suspect]
     Active Substance: TOFACITINIB CITRATE
     Indication: RHEUMATOID ARTHRITIS
     Dosage: 5 MG, 2X/DAY
     Route: 048
     Dates: start: 20201116, end: 202107
  2. METHOTREXATE. [Concomitant]
     Active Substance: METHOTREXATE
     Dosage: 20MG ? 12.5MG
     Dates: start: 20010308
  3. METHOTREXATE. [Concomitant]
     Active Substance: METHOTREXATE
     Dosage: 1 DF, 20MG ? 12.5MG(DOSING FREQUENCY UNAVAILABLE)DRUG STATUS UNKNOWN
     Route: 065
     Dates: start: 20010308
  4. IRBESARTAN. [Concomitant]
     Active Substance: IRBESARTAN
     Dosage: 150 MG, DOSING FREQUENCY UNAVAILABLE
     Route: 065
  5. ZOPICLONE [Concomitant]
     Active Substance: ZOPICLONE
     Dosage: 2.5 MG, 1 DF (2.5MG (DOSING FREQUENCY UNAVAILABLE))
     Route: 065
  6. CELEBREX [Concomitant]
     Active Substance: CELECOXIB
     Dosage: 200 MG, DOSING FREQUENCY UNAVAILABLE
     Route: 065
  7. EFFEXOR [Concomitant]
     Active Substance: VENLAFAXINE HYDROCHLORIDE
     Dosage: 200 MG, DOSING FREQUENCY UNAVAILABLE
     Route: 065
  8. FOLIC ACID. [Concomitant]
     Active Substance: FOLIC ACID
     Dosage: 5 MG, DOSING FREQUENCY UNAVAILABLE
     Route: 065

REACTIONS (2)
  - Drug ineffective [Unknown]
  - Deafness bilateral [Unknown]
